FAERS Safety Report 4270930-2 (Version None)
Quarter: 2004Q1

REPORT INFORMATION
  Report Type: 
  Country: None (occurrence: None)
  Receive Date: 20040113
  Receipt Date: 20031225
  Transmission Date: 20041129
  Serious: Yes (Death)
  Sender: FDA-Public Use
  Company Number: 2004IC000001

PATIENT
  Age: 70 Year
  Sex: Male

DRUGS (11)
  1. FLUOROURACIL [Suspect]
     Indication: OESOPHAGEAL CARCINOMA
     Dosage: 850 MG; INTRAVENOUS
     Route: 042
     Dates: start: 20011230, end: 20020103
  2. AQUPLA (NEDAPLATIN) [Suspect]
     Dosage: 155 MG; INTRAVENOUS
     Route: 042
     Dates: start: 20020104, end: 20020104
  3. GASTER [Concomitant]
  4. VITAJECT [Concomitant]
  5. ELEMENMIC [Concomitant]
  6. KYTRIL [Concomitant]
  7. LASIX [Concomitant]
  8. SOLU-CORTEF [Concomitant]
  9. VOLTAREN [Concomitant]
  10. FUNGIZONE [Concomitant]
  11. ULCERLMIN [Concomitant]

REACTIONS (3)
  - INTERSTITIAL LUNG DISEASE [None]
  - RADIATION PNEUMONITIS [None]
  - RESPIRATORY FAILURE [None]
